FAERS Safety Report 8260156-X (Version None)
Quarter: 2012Q2

REPORT INFORMATION
  Report Type: 
  Country: None (occurrence: None)
  Receive Date: 20120404
  Receipt Date: 20120323
  Transmission Date: 20120825
  Serious: No
  Sender: FDA-Public Use
  Company Number: US-B.I. PHARMACEUTICALS,INC./RIDGEFIELD-2011-BP-28392BP

PATIENT
  Sex: Male

DRUGS (10)
  1. TRIAMPTERENE [Concomitant]
     Indication: HYPERTENSION
     Route: 048
  2. POTASSIUM [Concomitant]
     Indication: BLOOD POTASSIUM DECREASED
  3. TAMSULOSIN HCL [Concomitant]
     Indication: BENIGN PROSTATIC HYPERPLASIA
     Dosage: 0.4 MG
     Route: 048
  4. SIMVASTATIN [Concomitant]
     Indication: BLOOD CHOLESTEROL INCREASED
     Dosage: 20 MG
     Route: 048
     Dates: start: 20020101
  5. TYLENOL [Concomitant]
     Indication: ARTHRALGIA
     Route: 048
     Dates: start: 20020101
  6. TYLENOL [Concomitant]
  7. POTASSIUM [Concomitant]
     Indication: SUPPLEMENTATION THERAPY
     Dosage: 20 MEQ
     Route: 048
     Dates: start: 20020101
  8. PRADAXA [Suspect]
     Indication: ATRIAL FIBRILLATION
     Dosage: 300 MG
     Route: 048
     Dates: start: 20111122
  9. DIGOXIN [Concomitant]
     Indication: ATRIAL FIBRILLATION
     Dosage: 0.125 MG
     Route: 048
  10. TAMSULOSIN HCL [Concomitant]
     Indication: PROSTATIC DISORDER

REACTIONS (4)
  - DYSPEPSIA [None]
  - CONSTIPATION [None]
  - MELAENA [None]
  - DIARRHOEA [None]
